FAERS Safety Report 12438507 (Version 2)
Quarter: 2016Q3

REPORT INFORMATION
  Report Type: Spontaneous
  Country: NO (occurrence: NO)
  Receive Date: 20160606
  Receipt Date: 20160720
  Transmission Date: 20161109
  Serious: Yes (Other)
  Sender: FDA-Public Use
  Company Number: NO-GLAXOSMITHKLINE-NO2016GSK067750

PATIENT
  Sex: Male

DRUGS (1)
  1. ZOVIRAX [Suspect]
     Active Substance: ACYCLOVIR
     Indication: PROPHYLAXIS
     Dosage: UNK
     Route: 047
     Dates: start: 2012

REACTIONS (9)
  - Iridocyclitis [Unknown]
  - Ocular hyperaemia [Recovering/Resolving]
  - Intraocular pressure increased [Unknown]
  - Eye pain [Recovering/Resolving]
  - Product quality issue [Not Recovered/Not Resolved]
  - Eye irritation [Recovering/Resolving]
  - Condition aggravated [Recovered/Resolved]
  - Purulent discharge [Recovering/Resolving]
  - Photophobia [Recovering/Resolving]
